FAERS Safety Report 8086123-7 (Version None)
Quarter: 2012Q1

REPORT INFORMATION
  Report Type: 
  Country: None (occurrence: None)
  Receive Date: 20120128
  Receipt Date: 20110414
  Transmission Date: 20120608
  Serious: No
  Sender: FDA-Public Use
  Company Number: US-ABBOTT-11P-163-0719058-00

PATIENT
  Age: 42 Year
  Sex: Female

DRUGS (6)
  1. HUMIRA [Suspect]
     Indication: ANKYLOSING SPONDYLITIS
     Dates: start: 20110315
  2. ZYRTEC [Concomitant]
     Indication: SEASONAL ALLERGY
  3. VITAMIN D [Concomitant]
     Indication: BONE DISORDER
     Dosage: 50,000 UNITS
  4. IRON [Concomitant]
     Indication: ANAEMIA
  5. PENTASA [Concomitant]
     Indication: CROHN'S DISEASE
  6. IRON [Concomitant]
     Indication: MINERAL SUPPLEMENTATION

REACTIONS (2)
  - SKIN EXFOLIATION [None]
  - NASOPHARYNGITIS [None]
